FAERS Safety Report 19640244 (Version 1)
Quarter: 2021Q3

REPORT INFORMATION
  Report Type: Spontaneous
  Country: CN (occurrence: CN)
  Receive Date: 20210729
  Receipt Date: 20210729
  Transmission Date: 20211014
  Serious: Yes (Other)
  Sender: FDA-Public Use
  Company Number: CN-SA-2021SA246045

PATIENT
  Age: 50 Year
  Sex: Male
  Weight: 60 kg

DRUGS (5)
  1. LEVOAMLODIPINE MALEATE [Suspect]
     Active Substance: LEVAMLODIPINE MALEATE
     Indication: HYPERTENSION
  2. ASPIRIN, PARACETAMOL AND CAFFEINE [Suspect]
     Active Substance: ACETAMINOPHEN\ASPIRIN\CAFFEINE
     Indication: HEADACHE
     Dosage: UNK UNK, QD
     Route: 048
     Dates: start: 20210704, end: 20210706
  3. LEVOAMLODIPINE MALEATE [Suspect]
     Active Substance: LEVAMLODIPINE MALEATE
     Indication: HEADACHE
     Dosage: 2.5 MG, QD
     Route: 048
     Dates: start: 20210704, end: 20210706
  4. IRBESARTAN. [Suspect]
     Active Substance: IRBESARTAN
     Indication: HYPERTENSION
  5. IRBESARTAN. [Suspect]
     Active Substance: IRBESARTAN
     Indication: HEADACHE
     Dosage: 0.15 G, QD
     Route: 048
     Dates: start: 20210704, end: 20210706

REACTIONS (4)
  - Pruritus [Unknown]
  - Rash [Unknown]
  - Hepatic function abnormal [Unknown]
  - Cough [Unknown]

NARRATIVE: CASE EVENT DATE: 20210705
